FAERS Safety Report 7341777-5 (Version None)
Quarter: 2011Q1

REPORT INFORMATION
  Report Type: 
  Country: None (occurrence: None)
  Receive Date: 20110309
  Receipt Date: 20110303
  Transmission Date: 20110831
  Serious: Yes (Death, Other)
  Sender: FDA-Public Use
  Company Number: JP-PFIZER INC-2010145411

PATIENT
  Age: 79 Year
  Sex: Female
  Weight: 44 kg

DRUGS (9)
  1. SODIUM BICARBONATE [Concomitant]
     Indication: METABOLIC ACIDOSIS
     Dosage: 1.5 G, DAILY
     Route: 048
     Dates: start: 20101103, end: 20101109
  2. NORVASC [Concomitant]
     Indication: HYPERTENSION
     Dosage: 5 MG, 1X/DAY
     Route: 048
     Dates: start: 20011011, end: 20101111
  3. PURSENNID [Concomitant]
     Indication: CONSTIPATION
     Dosage: 24 MG, 1X/DAY
     Route: 048
     Dates: start: 20031017, end: 20101111
  4. NITOROL R [Concomitant]
     Indication: HYPERTENSION
     Dosage: 20 MG, 2X/DAY
     Route: 048
     Dates: start: 20100925, end: 20101111
  5. LYRICA [Suspect]
     Indication: POST HERPETIC NEURALGIA
     Dosage: 25 MG, 1X/DAY AFTER DINNER
     Route: 048
     Dates: start: 20101109, end: 20101109
  6. LANSOPRAZOLE [Concomitant]
     Indication: GASTRIC ULCER
     Dosage: 15 MG, DAILY
     Route: 048
     Dates: start: 20101105, end: 20101109
  7. NU LOTAN [Concomitant]
     Indication: HYPERTENSION
     Dosage: 50 MG, 1X/DAY
     Route: 048
     Dates: start: 20080925, end: 20101103
  8. DIGOXIN [Concomitant]
     Indication: SUPRAVENTRICULAR TACHYCARDIA
     Dosage: 0.125 MG, 1X/DAY
     Route: 048
     Dates: start: 20050224, end: 20101025
  9. FAMVIR [Concomitant]
     Indication: HERPES ZOSTER
     Dosage: 1000 MG, 2X/DAY
     Route: 048
     Dates: start: 20101108, end: 20101114

REACTIONS (7)
  - ALTERED STATE OF CONSCIOUSNESS [None]
  - DYSPNOEA [None]
  - SCLERODERMA [None]
  - MYOCARDITIS [None]
  - CARDIO-RESPIRATORY ARREST [None]
  - HYPONATRAEMIA [None]
  - HYPERURICAEMIA [None]
